FAERS Safety Report 7800358-7 (Version None)
Quarter: 2011Q4

REPORT INFORMATION
  Report Type: 
  Country: None (occurrence: None)
  Receive Date: 20111006
  Receipt Date: 20110930
  Transmission Date: 20120403
  Serious: Yes (Hospitalization)
  Sender: FDA-Public Use
  Company Number: US-B.I. PHARMACEUTICALS,INC./RIDGEFIELD-2011-BP-23207BP

PATIENT
  Sex: Male

DRUGS (12)
  1. PRADAXA [Suspect]
     Indication: ATRIAL FIBRILLATION
     Dosage: 300 MG
     Route: 048
     Dates: start: 20110101, end: 20110928
  2. SKELAXIN [Concomitant]
     Indication: MUSCLE SPASTICITY
  3. ZOCOR [Concomitant]
     Indication: BLOOD CHOLESTEROL
  4. NUVIGIL [Concomitant]
     Indication: FATIGUE
  5. TREMADOL [Concomitant]
     Indication: PAIN
  6. LISINOPRIL [Concomitant]
     Indication: HYPERTENSION
  7. TRILEPTAL [Concomitant]
     Indication: PARKINSON'S DISEASE
  8. NEXIUM [Concomitant]
     Indication: GASTROOESOPHAGEAL REFLUX DISEASE
  9. LANTUS [Concomitant]
     Indication: DIABETES MELLITUS
  10. PRIMIDONE [Concomitant]
     Indication: PARKINSON'S DISEASE
  11. REQUIP [Concomitant]
     Indication: PARKINSON'S DISEASE
  12. SOMA [Concomitant]
     Indication: MULTIPLE SCLEROSIS

REACTIONS (6)
  - ASTHENIA [None]
  - CHEST PAIN [None]
  - CEREBROVASCULAR ACCIDENT [None]
  - BLOOD PRESSURE INCREASED [None]
  - PROTHROMBIN TIME PROLONGED [None]
  - SPEECH DISORDER [None]
